FAERS Safety Report 4811369-8 (Version None)
Quarter: 2005Q4

REPORT INFORMATION
  Report Type: 
  Country: None (occurrence: None)
  Receive Date: 20051026
  Receipt Date: 20051026
  Transmission Date: 20060501
  Serious: Yes (Other)
  Sender: FDA-Public Use
  Company Number: None

PATIENT
  Age: 63 Year
  Sex: Male
  Weight: 102 kg

DRUGS (2)
  1. RISPERIDONE [Suspect]
     Indication: DEPRESSION
     Dosage: 30 MG PO QD
     Route: 048
     Dates: start: 19990601, end: 20050517
  2. RISPERIDONE [Suspect]
     Indication: OBSESSIVE-COMPULSIVE DISORDER
     Dosage: 30 MG PO QD
     Route: 048
     Dates: start: 19990601, end: 20050517

REACTIONS (1)
  - BLOOD PROLACTIN INCREASED [None]
